FAERS Safety Report 22046029 (Version 1)
Quarter: 2023Q1

REPORT INFORMATION
  Report Type: Report from Study
  Country: US (occurrence: US)
  Receive Date: 20230228
  Receipt Date: 20230228
  Transmission Date: 20230417
  Serious: Yes (Other)
  Sender: FDA-Public Use
  Company Number: US-PFIZER INC-PV202300036803

PATIENT
  Age: 68 Year
  Sex: Male

DRUGS (2)
  1. LORBRENA [Suspect]
     Active Substance: LORLATINIB
     Dosage: 75 MG
     Dates: start: 202210
  2. LORBRENA [Suspect]
     Active Substance: LORLATINIB
     Dosage: 50 MG
     Dates: end: 202212

REACTIONS (3)
  - Renal impairment [Unknown]
  - Dizziness [Unknown]
  - Rash [Unknown]
